FAERS Safety Report 5528255-0 (Version None)
Quarter: 2007Q4

REPORT INFORMATION
  Report Type: 
  Country: None (occurrence: None)
  Receive Date: 20071128
  Receipt Date: 20071116
  Transmission Date: 20080405
  Serious: Yes (Other)
  Sender: FDA-Public Use
  Company Number: US-ASTRAZENECA-2007UW27052

PATIENT
  Age: 50 Year
  Sex: Female

DRUGS (2)
  1. ARIMIDEX [Suspect]
     Indication: BREAST CANCER METASTATIC
  2. NEXIUM [Concomitant]

REACTIONS (2)
  - CARDIAC DISORDER [None]
  - LUNG DISORDER [None]
